FAERS Safety Report 4834250-7 (Version None)
Quarter: 2005Q4

REPORT INFORMATION
  Report Type: 
  Country: None (occurrence: None)
  Receive Date: 20051122
  Receipt Date: 20050715
  Transmission Date: 20060501
  Serious: Yes (Hospitalization)
  Sender: FDA-Public Use
  Company Number: US-MERCK-0507USA02440

PATIENT
  Sex: Male
  Weight: 111 kg

DRUGS (17)
  1. PRAMIPEXOLE DIHYDROCHLORIDE [Concomitant]
     Route: 065
  2. VIOXX [Suspect]
     Indication: BACK PAIN
     Route: 048
     Dates: start: 19990803, end: 20031007
  3. CARBIDOPA [Concomitant]
     Route: 065
  4. AMITRIPTYLINE HYDROCHLORIDE [Concomitant]
     Route: 065
  5. LORATADINE [Concomitant]
     Route: 065
  6. HYOSCYAMINE [Concomitant]
     Route: 065
  7. ZOLOFT [Concomitant]
     Route: 065
  8. MECLIZINE [Concomitant]
     Route: 065
  9. DOXAZOSIN MESYLATE [Concomitant]
     Route: 065
  10. [THERAPY UNSPECIFIED] [Concomitant]
     Route: 065
  11. ACIPHEX [Concomitant]
     Route: 065
  12. ALTACE [Concomitant]
     Route: 065
  13. AMOXICILLIN [Concomitant]
     Route: 065
  14. TUSSI-12 [Concomitant]
     Route: 065
  15. PREVACID [Concomitant]
     Route: 065
  16. ALLEGRA [Concomitant]
     Route: 065
  17. ZOCOR [Concomitant]
     Route: 065

REACTIONS (2)
  - GALLBLADDER DISORDER [None]
  - MYOCARDIAL INFARCTION [None]
